FAERS Safety Report 8288974-2 (Version None)
Quarter: 2012Q2

REPORT INFORMATION
  Report Type: 
  Country: None (occurrence: None)
  Receive Date: 20120417
  Receipt Date: 20120406
  Transmission Date: 20120825
  Serious: Yes (Hospitalization)
  Sender: FDA-Public Use
  Company Number: JP-PERRIGO-12JP003028

PATIENT
  Age: 37 Year
  Sex: Male

DRUGS (3)
  1. BETAMETHASONE DIPROPIONATE RX 0.05% 0M3 [Suspect]
     Indication: DERMATITIS ATOPIC
     Dosage: APPLIED TO AREAS OF SEVERE DERMATITIS DAILY
     Route: 061
     Dates: start: 19820101
  2. BETAMETHASONE BUTYRATE PROPIONATE [Suspect]
     Indication: DERMATITIS ATOPIC
     Dosage: APPLIED TO CHEST AND FOREARMS
     Route: 061
     Dates: start: 19820101
  3. PREDNISOLONE [Suspect]
     Indication: DERMATITIS ATOPIC
     Dosage: APPLIED TO FACE AND NECK
     Route: 061
     Dates: start: 19820101

REACTIONS (2)
  - OSTEONECROSIS [None]
  - GLAUCOMA [None]
